FAERS Safety Report 8314207-4 (Version None)
Quarter: 2012Q2

REPORT INFORMATION
  Report Type: 
  Country: None (occurrence: None)
  Receive Date: 20120426
  Receipt Date: 20120420
  Transmission Date: 20120825
  Serious: Yes (Disabling)
  Sender: FDA-Public Use
  Company Number: PHHY2012NL029175

PATIENT
  Sex: Female
  Weight: 43 kg

DRUGS (1)
  1. ZOLEDRONOC ACID [Suspect]
     Indication: OSTEOPOROSIS
     Dosage: 5 MG, UNK
     Route: 042
     Dates: start: 20110418

REACTIONS (3)
  - METASTASES TO LYMPH NODES [None]
  - METASTASES TO BONE [None]
  - BREAST CANCER METASTATIC [None]
